FAERS Safety Report 9235511 (Version 2)
Quarter: 2013Q2

REPORT INFORMATION
  Report Type: Spontaneous
  Country: US (occurrence: None)
  Receive Date: 20121031
  Receipt Date: 20130107
  Transmission Date: 20140414
  Serious: Yes (Other)
  Sender: FDA-Public Use
  Company Number: PHEH2012US011942

PATIENT
  Age: 36 Year
  Sex: Female
  Weight: 64.9 kg

DRUGS (12)
  1. GILENYA [Suspect]
     Route: 048
  2. TIZANIDINE (TIZANIDINE) [Concomitant]
  3. FAMPRIDINE (FAMPRIDINE) TABLET [Concomitant]
  4. PROZAC (FLUOXETINE HYDROCHLORIDE) [Concomitant]
  5. DROSIRENONE (DROSPIRENONE) [Concomitant]
  6. BACLOFEN (BACLOFEN)TABLET [Concomitant]
  7. DETROL (TOLTERODINE L-TARTRATE)CAPSULE [Concomitant]
  8. FISH OIL (FISH OIL)CAPSULE [Concomitant]
  9. METROCREAM (METRONIDAZOLE) [Concomitant]
  10. PROTOPIC (TACROLIMUS) OINTMENT [Concomitant]
  11. MULTIVITAMINS(ASCORIC ACID, ERGOCALCIFEROL, FOLIC ACID, NICOTINAMIDE, PANTHENOL, RETINOL, RIBOFLAVIN, THIAMINE HYDROCHLORIDE) [Concomitant]
  12. CITRCAL +D (CALCIUM CITRATE, ERGOCALIFEROL) [Concomitant]

REACTIONS (2)
  - Paraesthesia [None]
  - Pruritus [None]
